FAERS Safety Report 23571316 (Version 6)
Quarter: 2025Q4

REPORT INFORMATION
  Report Type: Report from Study
  Country: JP (occurrence: JP)
  Receive Date: 20240227
  Receipt Date: 20251125
  Transmission Date: 20260117
  Serious: Yes (Other)
  Sender: ALEXION PHARMACEUTICALS
  Company Number: JP-AstraZeneca-CH-00570696A

PATIENT
  Age: 74 Year
  Sex: Female
  Weight: 41.8 kg

DRUGS (16)
  1. ULTOMIRIS [Suspect]
     Active Substance: RAVULIZUMAB-CWVZ
     Indication: Myasthenia gravis
     Dosage: 2400 MILLIGRAM
  2. ULTOMIRIS [Suspect]
     Active Substance: RAVULIZUMAB-CWVZ
     Dosage: 3000 MILLIGRAM
  3. SPIRONOLACTONE [Concomitant]
     Active Substance: SPIRONOLACTONE
     Indication: Product used for unknown indication
     Dosage: UNK
     Route: 065
  4. PREDONINE [Concomitant]
     Active Substance: PREDNISOLONE
     Indication: Myasthenia gravis
     Dosage: 15 MILLIGRAM
     Dates: start: 20221110, end: 20230731
  5. PREDONINE [Concomitant]
     Active Substance: PREDNISOLONE
     Dosage: 14 MILLIGRAM
     Dates: start: 20230801, end: 20230925
  6. PREDONINE [Concomitant]
     Active Substance: PREDNISOLONE
     Dosage: 13 MILLIGRAM
     Dates: start: 20230926, end: 20231120
  7. PREDONINE [Concomitant]
     Active Substance: PREDNISOLONE
     Dosage: 12 MILLIGRAM
     Dates: start: 20231121, end: 20240129
  8. PREDONINE [Concomitant]
     Active Substance: PREDNISOLONE
     Dosage: 11 MILLIGRAM
     Dates: start: 20240130, end: 20240408
  9. PREDONINE [Concomitant]
     Active Substance: PREDNISOLONE
     Dosage: 10 MILLIGRAM
     Dates: start: 20240409, end: 20240708
  10. PREDONINE [Concomitant]
     Active Substance: PREDNISOLONE
     Dosage: 9 MILLIGRAM
     Dates: start: 20240709, end: 20240909
  11. PREDONINE [Concomitant]
     Active Substance: PREDNISOLONE
     Dosage: 8 MILLIGRAM
  12. PROGRAF [Concomitant]
     Active Substance: TACROLIMUS
     Indication: Myasthenia gravis
     Dosage: 1 MILLIGRAM
     Dates: start: 20221025, end: 20230522
  13. PROGRAF [Concomitant]
     Active Substance: TACROLIMUS
     Dosage: 2 MILLIGRAM
     Dates: start: 20230523, end: 20230605
  14. PROGRAF [Concomitant]
     Active Substance: TACROLIMUS
     Dosage: 3 MILLIGRAM
     Dates: start: 20230606, end: 20240408
  15. PROGRAF [Concomitant]
     Active Substance: TACROLIMUS
     Dosage: 2 MILLIGRAM
     Dates: start: 20240409, end: 20240411
  16. TACROLIMUS [Concomitant]
     Active Substance: TACROLIMUS
     Indication: Product used for unknown indication
     Dosage: UNK
     Route: 065

REACTIONS (4)
  - Cardiac amyloidosis [Not Recovered/Not Resolved]
  - Renal impairment [Not Recovered/Not Resolved]
  - Right ventricular failure [Not Recovered/Not Resolved]
  - Hepatic function abnormal [Not Recovered/Not Resolved]

NARRATIVE: CASE EVENT DATE: 20231218
